FAERS Safety Report 20177733 (Version 2)
Quarter: 2021Q4

REPORT INFORMATION
  Report Type: Spontaneous
  Country: US (occurrence: US)
  Receive Date: 20211213
  Receipt Date: 20211222
  Transmission Date: 20220303
  Serious: Yes (Hospitalization, Other)
  Sender: FDA-Public Use
  Company Number: US-ALLERGAN-2141883US

PATIENT
  Sex: Female

DRUGS (2)
  1. BOTOX [Suspect]
     Active Substance: ONABOTULINUMTOXINA
     Indication: Neurogenic bladder
     Dosage: UNK UNK, SINGLE
     Dates: start: 20210701, end: 20210701
  2. IBRANCE [Concomitant]
     Active Substance: PALBOCICLIB
     Dosage: 75 MG

REACTIONS (6)
  - Urinary bladder haemorrhage [Recovered/Resolved]
  - Haematuria [Unknown]
  - Dysstasia [Unknown]
  - Urethral pain [Unknown]
  - Wrong technique in product usage process [Unknown]
  - Urinary tract procedural complication [Recovering/Resolving]
